FAERS Safety Report 20068552 (Version 1)
Quarter: 2021Q4

REPORT INFORMATION
  Report Type: Spontaneous
  Country: US (occurrence: US)
  Receive Date: 20211115
  Receipt Date: 20211115
  Transmission Date: 20220303
  Serious: No
  Sender: FDA-Public Use
  Company Number: US-PFIZER INC-202101577612

PATIENT
  Age: 64 Year
  Sex: Female
  Weight: 138.35 kg

DRUGS (1)
  1. PREGABALIN [Suspect]
     Active Substance: PREGABALIN

REACTIONS (1)
  - Drug ineffective [Unknown]
